FAERS Safety Report 5745082-X (Version None)
Quarter: 2008Q2

REPORT INFORMATION
  Report Type: 
  Country: None (occurrence: None)
  Receive Date: 20080521
  Receipt Date: 20080515
  Transmission Date: 20081010
  Serious: Yes (Hospitalization)
  Sender: FDA-Public Use
  Company Number: AT-BRISTOL-MYERS SQUIBB COMPANY-14197768

PATIENT
  Age: 48 Year
  Sex: Male
  Weight: 85 kg

DRUGS (2)
  1. GLUCOPHAGE [Suspect]
     Indication: TYPE 1 DIABETES MELLITUS
     Route: 048
     Dates: start: 20080201, end: 20080401
  2. EBETREXAT [Concomitant]
     Indication: PSORIATIC ARTHROPATHY
     Dosage: DOSAGE FORM- TABLET,DUR-SINCE 10 YEARS
     Route: 048

REACTIONS (1)
  - DRUG ERUPTION [None]
